FAERS Safety Report 7872501-5 (Version None)
Quarter: 2011Q4

REPORT INFORMATION
  Report Type: 
  Country: None (occurrence: None)
  Receive Date: 20111030
  Receipt Date: 20110427
  Transmission Date: 20120403
  Serious: No
  Sender: FDA-Public Use
  Company Number: US-AMGEN-USASP2011021944

PATIENT
  Age: 55 Year
  Sex: Female

DRUGS (2)
  1. PREDNISONE [Concomitant]
     Dosage: UNK
  2. ENBREL [Suspect]
     Indication: PSORIATIC ARTHROPATHY
     Dosage: 50 MG, QWK
     Dates: start: 20110417

REACTIONS (7)
  - FEELING HOT [None]
  - FEELING JITTERY [None]
  - TOOTH MALFORMATION [None]
  - STOMATITIS [None]
  - BLOOD PRESSURE INCREASED [None]
  - MIDDLE INSOMNIA [None]
  - FLUID RETENTION [None]
